FAERS Safety Report 4510441-X (Version None)
Quarter: 2004Q4

REPORT INFORMATION
  Report Type: 
  Country: None (occurrence: None)
  Receive Date: 20041122
  Receipt Date: 20041112
  Transmission Date: 20050328
  Serious: Yes (Other)
  Sender: FDA-Public Use
  Company Number: KII-2004-0013958

PATIENT
  Age: 46 Year
  Sex: Female

DRUGS (4)
  1. OXYCONTIN [Suspect]
     Indication: PAIN
  2. METHADONE (METHADONE) [Suspect]
     Indication: PAIN
     Dosage: ORAL
     Route: 048
  3. ASPIRIN [Suspect]
  4. ACETAMINOPHEN [Suspect]

REACTIONS (3)
  - COMA [None]
  - MEDICATION ERROR [None]
  - SELF-MEDICATION [None]
